FAERS Safety Report 8200180-6 (Version None)
Quarter: 2012Q1

REPORT INFORMATION
  Report Type: 
  Country: None (occurrence: None)
  Receive Date: 20120309
  Receipt Date: 20120309
  Transmission Date: 20120608
  Serious: No
  Sender: FDA-Public Use
  Company Number: None

PATIENT

DRUGS (2)
  1. RITUXAN [Suspect]
     Indication: LYMPHOMA
     Dosage: 765MG - IVSS
     Route: 042
     Dates: start: 20120307
  2. RITUXAN [Suspect]

REACTIONS (4)
  - THROAT TIGHTNESS [None]
  - PALLOR [None]
  - DYSPNOEA [None]
  - BLOOD PRESSURE INCREASED [None]
